FAERS Safety Report 8570528-1 (Version None)
Quarter: 2012Q3

REPORT INFORMATION
  Report Type: 
  Country: None (occurrence: None)
  Receive Date: 20120803
  Receipt Date: 20120724
  Transmission Date: 20120928
  Serious: No
  Sender: FDA-Public Use
  Company Number: US-ASTRAZENECA-2012SE52096

PATIENT
  Sex: Female
  Weight: 77.1 kg

DRUGS (5)
  1. CHLORD/CLIDI CAPSULES [Concomitant]
  2. SYNTHROID [Concomitant]
  3. CRESTOR [Suspect]
     Indication: BLOOD CHOLESTEROL INCREASED
     Route: 048
     Dates: start: 20120101
  4. OMEPRAZOLE [Suspect]
     Route: 048
  5. ATENOLOL [Suspect]
     Route: 048

REACTIONS (4)
  - VERTIGO [None]
  - OEDEMA PERIPHERAL [None]
  - DIZZINESS [None]
  - DRY SKIN [None]
